FAERS Safety Report 10311395 (Version 3)
Quarter: 2014Q3

REPORT INFORMATION
  Report Type: Spontaneous
  Country: CA (occurrence: None)
  Receive Date: 20140715
  Receipt Date: 20140903
  Transmission Date: 20150326
  Serious: Yes (Hospitalization)
  Sender: FDA-Public Use
  Company Number: KAD201407-000751

PATIENT
  Age: 67 Year
  Sex: Male
  Weight: 67 kg

DRUGS (11)
  1. CIPROFLOXACIN (CIPROFLOXACIN) (CIPROFLOXACIN) [Concomitant]
     Active Substance: CIPROFLOXACIN
  2. ZOFRAN (ONDANSETRON) (ONDANSETRON) [Concomitant]
  3. FUROSEMIDE (FUROSEMIDE) (FUROSEMIDE) [Concomitant]
     Active Substance: FUROSEMIDE
  4. RIBAVIRIN (RIBAVIRIN) [Suspect]
     Active Substance: RIBAVIRIN
     Indication: HEPATITIS C
     Route: 048
     Dates: start: 20140409, end: 20140602
  5. HYDROMORPHONE (HYDROMORPHONE) (HYDROMORPHONE)? [Concomitant]
  6. PROPANOLOL (PROPANOLOL) (PROPANOLOL) [Concomitant]
  7. SPIRONOLACTON (SPIRONOLACTONE) (SPIRONOLACTONE)? [Concomitant]
  8. BUDESONIDE PUFFER (BUDESONIDE PUFFER) (BUDESONIDE PUFFER) [Concomitant]
  9. SOFOSBUVIR/LEDIPASVIR [Suspect]
     Active Substance: LEDIPASVIR\SOFOSBUVIR
     Indication: HEPATITIS C
     Route: 048
     Dates: start: 20140409, end: 20140702
  10. ZOPICLONE (ZOPICLONE) (ZOPICLONE) [Concomitant]
     Active Substance: ZOPICLONE
  11. CIPROFLOXACIN (CIPROFLOXACIN) (CIPROFLOXACIN) [Concomitant]
     Active Substance: CIPROFLOXACIN

REACTIONS (6)
  - Asthenia [None]
  - Liver transplant [None]
  - Anaemia [None]
  - Dehydration [None]
  - Pleural effusion [None]
  - Fall [None]

NARRATIVE: CASE EVENT DATE: 20140702
